APPROVED DRUG PRODUCT: CHIRHOSTIM
Active Ingredient: SECRETIN SYNTHETIC HUMAN
Strength: 40MCG/VIAL
Dosage Form/Route: FOR SOLUTION;INTRAVENOUS
Application: N021256 | Product #002
Applicant: CHIRHOCLIN INC
Approved: Jun 21, 2007 | RLD: Yes | RS: No | Type: RX